FAERS Safety Report 5730193-5 (Version None)
Quarter: 2008Q2

REPORT INFORMATION
  Report Type: 
  Country: None (occurrence: None)
  Receive Date: 20080505
  Receipt Date: 20080505
  Transmission Date: 20081010
  Serious: Yes (Hospitalization)
  Sender: FDA-Public Use
  Company Number: None

PATIENT
  Age: 39 Year
  Sex: Male

DRUGS (3)
  1. QUETIAPINE FUMARATE [Suspect]
     Indication: INSOMNIA
     Dosage: 300 MG EVERY DAY PO
     Route: 048
     Dates: start: 20080421, end: 20080501
  2. QUETIAPINE FUMARATE [Suspect]
     Indication: POST-TRAUMATIC STRESS DISORDER
     Dosage: 300 MG EVERY DAY PO
     Route: 048
     Dates: start: 20080421, end: 20080501
  3. QUETIAPINE FUMARATE [Suspect]
     Dosage: 150 MG EVERY DAY PO
     Route: 048
     Dates: start: 20080402, end: 20080421

REACTIONS (4)
  - RASH ERYTHEMATOUS [None]
  - RASH PAPULAR [None]
  - RASH PRURITIC [None]
  - URTICARIA [None]
